FAERS Safety Report 12227276 (Version 1)
Quarter: 2016Q1

REPORT INFORMATION
  Report Type: Spontaneous
  Country: GB (occurrence: GB)
  Receive Date: 20160331
  Receipt Date: 20160331
  Transmission Date: 20160526
  Serious: Yes (Other)
  Sender: FDA-Public Use
  Company Number: GB-TEVA-647228ACC

PATIENT
  Age: 72 Year
  Sex: Male
  Weight: 90 kg

DRUGS (6)
  1. COD LIVER OIL [Concomitant]
     Active Substance: COD LIVER OIL
     Dosage: 1 GRAM DAILY; IN THE MORNING.
  2. GINKGO BILOBA EXTRACT [Concomitant]
     Active Substance: GINKGO
     Dosage: 6 GRAM DAILY; STANDARDISED EXTRACT
  3. NAPROXEN. [Concomitant]
     Active Substance: NAPROXEN
     Dosage: 250 MILLIGRAM DAILY; AFTER FOOD IN THE MORNING
  4. DOXYCYCLINE. [Suspect]
     Active Substance: DOXYCYCLINE
     Indication: MALARIA PROPHYLAXIS
     Dosage: 50 MILLIGRAM DAILY;
     Route: 048
     Dates: start: 20160216, end: 20160224
  5. TAMSULOSINE [Concomitant]
     Active Substance: TAMSULOSIN HYDROCHLORIDE
     Dosage: 400 MICROGRAM DAILY; IN THE MORNING.
  6. DORZOLAMIDE [Concomitant]
     Active Substance: DORZOLAMIDE
     Dosage: 3 GTT DAILY; LEFT EYE ONLY
     Route: 047

REACTIONS (2)
  - Nightmare [Recovered/Resolved]
  - Daydreaming [Recovered/Resolved]

NARRATIVE: CASE EVENT DATE: 20160217
